FAERS Safety Report 24062347 (Version 2)
Quarter: 2024Q3

REPORT INFORMATION
  Report Type: Spontaneous
  Country: AU (occurrence: AU)
  Receive Date: 20240708
  Receipt Date: 20240712
  Transmission Date: 20241016
  Serious: Yes (Other)
  Sender: MERCK
  Company Number: AU-009507513-2407AUS001334

PATIENT
  Age: 79 Year
  Sex: Male

DRUGS (1)
  1. SUGAMMADEX SODIUM [Suspect]
     Active Substance: SUGAMMADEX SODIUM
     Indication: Neuromuscular blockade reversal
     Dosage: UNK
     Route: 042
     Dates: start: 20230703

REACTIONS (4)
  - Hypotension [Recovered/Resolved]
  - Rash [Unknown]
  - Tachycardia [Unknown]
  - Tryptase increased [Unknown]

NARRATIVE: CASE EVENT DATE: 20230703
